FAERS Safety Report 4473952-1 (Version None)
Quarter: 2004Q4

REPORT INFORMATION
  Report Type: 
  Country: None (occurrence: None)
  Receive Date: 20041014
  Receipt Date: 20041004
  Transmission Date: 20050328
  Serious: Yes (Hospitalization)
  Sender: FDA-Public Use
  Company Number: GB-JNJFOC-20041000813

PATIENT
  Sex: Female

DRUGS (7)
  1. REMICADE [Suspect]
     Indication: RHEUMATOID ARTHRITIS
     Route: 042
  2. METHOTREXATE [Concomitant]
  3. FOLIC ACID [Concomitant]
  4. PREDNISOLONE [Concomitant]
  5. THYROXINE [Concomitant]
  6. ALENDRONATE SODIUM [Concomitant]
  7. PARACETAMOL [Concomitant]

REACTIONS (3)
  - BARRETT'S OESOPHAGUS [None]
  - HAEMATEMESIS [None]
  - HIATUS HERNIA [None]
